FAERS Safety Report 15690724 (Version 1)
Quarter: 2018Q4

REPORT INFORMATION
  Report Type: Report from Study
  Country: US (occurrence: US)
  Receive Date: 20181205
  Receipt Date: 20181205
  Transmission Date: 20190205
  Serious: Yes (Hospitalization)
  Sender: FDA-Public Use
  Company Number: US-THERAVANCE-2017-000091

PATIENT
  Age: 27 Year
  Sex: Female

DRUGS (3)
  1. TELAVANCIN [Suspect]
     Active Substance: TELAVANCIN
     Indication: STAPHYLOCOCCAL INFECTION
     Dosage: 600 MG, QD
     Route: 042
     Dates: start: 20170125, end: 20170221
  2. TELAVANCIN [Suspect]
     Active Substance: TELAVANCIN
     Indication: STAPHYLOCOCCAL ABSCESS
  3. TELAVANCIN [Suspect]
     Active Substance: TELAVANCIN
     Indication: CELLULITIS STAPHYLOCOCCAL

REACTIONS (1)
  - Cellulitis [Recovered/Resolved]

NARRATIVE: CASE EVENT DATE: 20170311
